FAERS Safety Report 5423114-6 (Version None)
Quarter: 2007Q3

REPORT INFORMATION
  Report Type: 
  Country: None (occurrence: None)
  Receive Date: 20070821
  Receipt Date: 20070814
  Transmission Date: 20080115
  Serious: Yes (Hospitalization)
  Sender: FDA-Public Use
  Company Number: DIB2007002 FP#1

PATIENT
  Age: 48 Year
  Sex: Female

DRUGS (5)
  1. PHENOXYBENZAMINE [Suspect]
     Indication: PHAEOCHROMOCYTOMA
     Dosage: 10 MG-30 MG/DAY, ORAL, INTRAVENOUS
  2. LABETALOL HCL [Suspect]
     Indication: PHAEOCHROMOCYTOMA
     Dosage: 10 MG/H, INFUSION (IV)
     Route: 042
  3. METOPROLOL SUCCINATE [Suspect]
     Indication: HYPERTENSION
     Dosage: 25 MG TWICE DAILY, ORAL
     Route: 048
  4. FELODIPINE [Concomitant]
  5. PSEUDOEPHEDRINE HCL [Concomitant]

REACTIONS (5)
  - BRADYCARDIA [None]
  - CARDIAC ARREST [None]
  - NO THERAPEUTIC RESPONSE [None]
  - PRODUCTIVE COUGH [None]
  - PYREXIA [None]
